FAERS Safety Report 4749443-7 (Version None)
Quarter: 2005Q3

REPORT INFORMATION
  Report Type: 
  Country: None (occurrence: None)
  Receive Date: 20050822
  Receipt Date: 20050810
  Transmission Date: 20060218
  Serious: Yes (Other)
  Sender: FDA-Public Use
  Company Number: CA-JNJFOC-20050802871

PATIENT
  Sex: Female
  Weight: 61.24 kg

DRUGS (3)
  1. REMICADE [Suspect]
     Dosage: 3 DOSES IN 2004- DATES AND DOSAGE UNKNOWN
     Route: 042
  2. REMICADE [Suspect]
     Indication: CROHN'S DISEASE
     Route: 042
  3. IMURAN [Concomitant]
     Indication: CROHN'S DISEASE
     Route: 048

REACTIONS (3)
  - MONARTHRITIS [None]
  - SURGERY [None]
  - SYNOVITIS [None]
